FAERS Safety Report 8238092-4 (Version None)
Quarter: 2012Q1

REPORT INFORMATION
  Report Type: 
  Country: None (occurrence: None)
  Receive Date: 20120327
  Receipt Date: 20120323
  Transmission Date: 20120608
  Serious: Yes (Hospitalization)
  Sender: FDA-Public Use
  Company Number: AT-GLAXOSMITHKLINE-B0790858A

PATIENT
  Age: 18 Month
  Sex: Male

DRUGS (1)
  1. LAMICTAL [Suspect]
     Indication: PRODUCT USED FOR UNKNOWN INDICATION
     Route: 048
     Dates: start: 20110716, end: 20110716

REACTIONS (5)
  - ATAXIA [None]
  - HYPOTENSION [None]
  - SOMNOLENCE [None]
  - ACCIDENTAL OVERDOSE [None]
  - DIZZINESS [None]
